FAERS Safety Report 4302498-6 (Version None)
Quarter: 2004Q1

REPORT INFORMATION
  Report Type: 
  Country: None (occurrence: None)
  Receive Date: 20040220
  Receipt Date: 20040213
  Transmission Date: 20041129
  Serious: Yes (Hospitalization)
  Sender: FDA-Public Use
  Company Number: TEST00204000192

PATIENT
  Sex: Male

DRUGS (1)
  1. ANDROGEL [Suspect]
     Indication: ILL-DEFINED DISORDER
     Dosage: DAILY TD
     Route: 062

REACTIONS (1)
  - TENDON RUPTURE [None]
